FAERS Safety Report 17819610 (Version 3)
Quarter: 2020Q2

REPORT INFORMATION
  Report Type: Spontaneous
  Country: BE (occurrence: BE)
  Receive Date: 20200523
  Receipt Date: 20200622
  Transmission Date: 20200714
  Serious: Yes (Hospitalization, Other)
  Sender: FDA-Public Use
  Company Number: NVSC2020BE140620

PATIENT
  Sex: Female

DRUGS (1)
  1. GILENYA [Suspect]
     Active Substance: FINGOLIMOD HYDROCHLORIDE
     Indication: MULTIPLE SCLEROSIS
     Dosage: 0.5 MG, QD
     Route: 065
     Dates: start: 20160307, end: 20200515

REACTIONS (12)
  - Disorientation [Unknown]
  - Impaired reasoning [Unknown]
  - Memory impairment [Unknown]
  - Lymphopenia [Unknown]
  - Cognitive disorder [Unknown]
  - Diplopia [Recovered/Resolved]
  - Progressive multifocal leukoencephalopathy [Not Recovered/Not Resolved]
  - Fatigue [Unknown]
  - Confusional state [Unknown]
  - Cerebellar infarction [Unknown]
  - Aphasia [Unknown]
  - Cranial nerve disorder [Unknown]

NARRATIVE: CASE EVENT DATE: 202005
